FAERS Safety Report 15499486 (Version 1)
Quarter: 2018Q4

REPORT INFORMATION
  Report Type: Spontaneous
  Country: US (occurrence: US)
  Receive Date: 20181015
  Receipt Date: 20181015
  Transmission Date: 20190205
  Serious: No
  Sender: FDA-Public Use
  Company Number: US-MERZ NORTH AMERICA, INC.-18MRZ-00537

PATIENT

DRUGS (1)
  1. ASCLERA [Suspect]
     Active Substance: POLIDOCANOL
     Indication: SCLEROTHERAPY
     Dosage: 7220221, ASCLERA (POLIDOCANOL) 1%,  10MG/ML,  5 X 2ML GLASS AMPULES, NDC46783-221-52

REACTIONS (3)
  - Dyspepsia [Unknown]
  - Adverse drug reaction [Unknown]
  - Cough [Unknown]
